FAERS Safety Report 24045776 (Version 5)
Quarter: 2024Q4

REPORT INFORMATION
  Report Type: Report from Study
  Country: US (occurrence: US)
  Receive Date: 20240703
  Receipt Date: 20241220
  Transmission Date: 20250115
  Serious: Yes (Other)
  Sender: NOVARTIS
  Company Number: US-002147023-NVSC2024US101239

PATIENT
  Sex: Male

DRUGS (1)
  1. KESIMPTA [Suspect]
     Active Substance: OFATUMUMAB
     Indication: Product used for unknown indication
     Dosage: UNK
     Route: 065
     Dates: start: 20240520

REACTIONS (9)
  - Blindness [Unknown]
  - Cerebral disorder [Unknown]
  - Reading disorder [Unknown]
  - General physical health deterioration [Unknown]
  - Central nervous system lesion [Unknown]
  - Memory impairment [Unknown]
  - Product use issue [Unknown]
  - Renal disorder [Unknown]
  - Decubitus ulcer [Unknown]
